FAERS Safety Report 6081738-X (Version None)
Quarter: 2009Q1

REPORT INFORMATION
  Report Type: 
  Country: None (occurrence: None)
  Receive Date: 20090213
  Receipt Date: 20090130
  Transmission Date: 20090719
  Serious: Yes (Hospitalization)
  Sender: FDA-Public Use
  Company Number: DSA_33166_2009

PATIENT
  Sex: Female
  Weight: 44 kg

DRUGS (5)
  1. LORAZEPAM [Suspect]
     Indication: DEPRESSION
     Dosage: 2.5 MG QID ORAL
     Route: 048
     Dates: start: 20090110, end: 20090114
  2. EFFEXOR [Suspect]
     Indication: MAJOR DEPRESSION
     Dosage: 150 MG QD ORAL, 225 MG QD ORAL, 150 MG QD, ORAL
     Route: 048
     Dates: start: 20090111, end: 20090101
  3. EFFEXOR [Suspect]
     Indication: MAJOR DEPRESSION
     Dosage: 150 MG QD ORAL, 225 MG QD ORAL, 150 MG QD, ORAL
     Route: 048
     Dates: start: 20080711, end: 20090110
  4. EFFEXOR [Suspect]
     Indication: MAJOR DEPRESSION
     Dosage: 150 MG QD ORAL, 225 MG QD ORAL, 150 MG QD, ORAL
     Route: 048
     Dates: start: 20090101
  5. SEROQUEL [Suspect]
     Indication: MAJOR DEPRESSION
     Dosage: 300 MG QD ORAL
     Route: 048
     Dates: start: 20090110, end: 20090114

REACTIONS (6)
  - DRUG INTERACTION [None]
  - DRUG LEVEL ABOVE THERAPEUTIC [None]
  - HYPOTENSION [None]
  - MALAISE [None]
  - PALPITATIONS [None]
  - SUPRAVENTRICULAR TACHYCARDIA [None]
